FAERS Safety Report 7472791-7 (Version None)
Quarter: 2011Q1

REPORT INFORMATION
  Report Type: 
  Country: None (occurrence: None)
  Receive Date: 20110302
  Receipt Date: 20101210
  Transmission Date: 20110831
  Serious: Yes (Death)
  Sender: FDA-Public Use
  Company Number: 163-21880-10121298

PATIENT
  Age: 65 Year
  Sex: Male

DRUGS (8)
  1. REVLIMID [Suspect]
     Indication: MULTIPLE MYELOMA
     Dosage: 25 MG, DAILY X 21 DAYS, PO
     Route: 048
     Dates: start: 20101101
  2. DEXAMETHASONE [Concomitant]
  3. LEXAPRO [Concomitant]
  4. PHENERGAN HCL [Concomitant]
  5. PILOCARPINE [Concomitant]
  6. VELCADE [Concomitant]
  7. ZOMETA [Concomitant]
  8. OMEPRAZOLE [Concomitant]

REACTIONS (1)
  - DEATH [None]
